FAERS Safety Report 8019288-3 (Version None)
Quarter: 2012Q1

REPORT INFORMATION
  Report Type: 
  Country: None (occurrence: None)
  Receive Date: 20120103
  Receipt Date: 20111129
  Transmission Date: 20120608
  Serious: Yes (Death, Hospitalization, Other)
  Sender: FDA-Public Use
  Company Number: ES-CELGENEUS-144-21880-09062070

PATIENT
  Age: 69 Year
  Sex: Female
  Weight: 58.3 kg

DRUGS (7)
  1. DEXAMETHASONE [Suspect]
     Indication: MULTIPLE MYELOMA
     Route: 065
     Dates: start: 20090507, end: 20090523
  2. POTASSIUM ASCORBATE [Concomitant]
     Route: 065
  3. OMEPRAZOLE [Concomitant]
     Route: 065
  4. FUROSEMIDE [Concomitant]
     Route: 065
  5. CIPROFLOXACIN [Concomitant]
     Route: 065
  6. REVLIMID [Suspect]
     Indication: MULTIPLE MYELOMA
     Route: 048
     Dates: start: 20090507, end: 20090524
  7. LBH589 [Suspect]
     Indication: MULTIPLE MYELOMA
     Dosage: 25 MILLIGRAM
     Route: 048
     Dates: start: 20090504, end: 20090529

REACTIONS (6)
  - NEUTROPENIA [None]
  - PNEUMATOSIS INTESTINALIS [None]
  - THROMBOCYTOPENIA [None]
  - PYREXIA [None]
  - DIARRHOEA [None]
  - INFECTION [None]
